FAERS Safety Report 8286641-2 (Version None)
Quarter: 2012Q2

REPORT INFORMATION
  Report Type: 
  Country: None (occurrence: None)
  Receive Date: 20120416
  Receipt Date: 20120403
  Transmission Date: 20120825
  Serious: Yes (Hospitalization, Other)
  Sender: FDA-Public Use
  Company Number: US-SHIRE-ALL1-2012-01772

PATIENT
  Sex: Female
  Weight: 58.957 kg

DRUGS (1)
  1. ADDERALL XR 10 [Suspect]
     Indication: ATTENTION DEFICIT/HYPERACTIVITY DISORDER
     Dosage: 30 MG, 1X/DAY:QD
     Route: 048

REACTIONS (8)
  - PARALYSIS [None]
  - DEPRESSION [None]
  - UPPER LIMB FRACTURE [None]
  - ROAD TRAFFIC ACCIDENT [None]
  - FATIGUE [None]
  - ENERGY INCREASED [None]
  - CONVULSION [None]
  - SPINAL FRACTURE [None]
